FAERS Safety Report 8611709-8 (Version None)
Quarter: 2012Q3

REPORT INFORMATION
  Report Type: 
  Country: None (occurrence: None)
  Receive Date: 20120822
  Receipt Date: 20120814
  Transmission Date: 20120928
  Serious: Yes (Other)
  Sender: FDA-Public Use
  Company Number: US-UCBSA-063742

PATIENT
  Sex: Male

DRUGS (3)
  1. KEPPRA XR [Suspect]
     Route: 063
     Dates: start: 20090203
  2. KEPPRA [Suspect]
     Indication: EPILEPSY
     Route: 064
     Dates: end: 20090203
  3. KEPPRA XR [Suspect]
     Indication: EPILEPSY
     Route: 064
     Dates: start: 20090203, end: 20090716

REACTIONS (11)
  - AGGRESSION [None]
  - CONSTIPATION [None]
  - RESTLESSNESS [None]
  - CHOKING [None]
  - ABNORMAL BEHAVIOUR [None]
  - POOR QUALITY SLEEP [None]
  - EXPOSURE DURING BREAST FEEDING [None]
  - COORDINATION ABNORMAL [None]
  - PSYCHOMOTOR HYPERACTIVITY [None]
  - FOETAL EXPOSURE DURING PREGNANCY [None]
  - SPEECH DISORDER DEVELOPMENTAL [None]
